FAERS Safety Report 6564508-5 (Version None)
Quarter: 2010Q1

REPORT INFORMATION
  Report Type: 
  Country: None (occurrence: None)
  Receive Date: 20100201
  Receipt Date: 20100120
  Transmission Date: 20100710
  Serious: Yes (Hospitalization)
  Sender: FDA-Public Use
  Company Number: US-ELI_LILLY_AND_COMPANY-US201001004305

PATIENT
  Sex: Female

DRUGS (5)
  1. FORTEO [Suspect]
     Indication: OSTEOPOROSIS
     Dosage: 20 UG, DAILY (1/D)
     Dates: end: 20100106
  2. LOVENOX [Concomitant]
  3. CRESTOR [Concomitant]
  4. LACTULOSE [Concomitant]
  5. ZETIA [Concomitant]

REACTIONS (2)
  - FALL [None]
  - TIBIA FRACTURE [None]
